FAERS Safety Report 20063783 (Version 2)
Quarter: 2021Q4

REPORT INFORMATION
  Report Type: Spontaneous
  Country: CZ (occurrence: CZ)
  Receive Date: 20211112
  Receipt Date: 20211231
  Transmission Date: 20220303
  Serious: Yes (Other)
  Sender: FDA-Public Use
  Company Number: CZ-TEVA-2021-CZ-1975548

PATIENT
  Age: 65 Year
  Sex: Female

DRUGS (5)
  1. DOXORUBICIN [Suspect]
     Active Substance: DOXORUBICIN
     Indication: Marginal zone lymphoma
     Dosage: 6 CYCLES OF R-CHOP CHEMOTHERAPY
     Route: 065
     Dates: start: 201903, end: 201907
  2. VINCRISTINE [Suspect]
     Active Substance: VINCRISTINE
     Indication: Marginal zone lymphoma
     Dosage: 6 CYCLES OF R-CHOP CHEMOTHERAPY
     Route: 065
     Dates: start: 201903, end: 201907
  3. MABTHERA [Suspect]
     Active Substance: RITUXIMAB
     Indication: Marginal zone lymphoma
     Dosage: 6 CYCLES OF R-CHOP CHEMOTHERAPY
     Route: 065
     Dates: start: 201903, end: 201907
  4. CYCLOPHOSPHAMIDE [Suspect]
     Active Substance: CYCLOPHOSPHAMIDE
     Indication: Marginal zone lymphoma
     Dosage: 6 CYCLES OF R-CHOP CHEMOTHERAPY
     Route: 065
     Dates: start: 201903, end: 201907
  5. PREDNISONE [Suspect]
     Active Substance: PREDNISONE
     Indication: Marginal zone lymphoma
     Dosage: 6 CYCLES OF R-CHOP CHEMOTHERAPY
     Route: 065
     Dates: start: 201903, end: 201907

REACTIONS (4)
  - Cytopenia [Unknown]
  - Nausea [Recovered/Resolved]
  - Vomiting [Recovered/Resolved]
  - Tremor [Recovered/Resolved]

NARRATIVE: CASE EVENT DATE: 20190301
